FAERS Safety Report 9055604 (Version 2)
Quarter: 2013Q1

REPORT INFORMATION
  Report Type: Spontaneous
  Country: US (occurrence: US)
  Receive Date: 20130204
  Receipt Date: 20130204
  Transmission Date: 20140127
  Serious: Yes (Hospitalization)
  Sender: FDA-Public Use
  Company Number: US-ELI_LILLY_AND_COMPANY-US201212007183

PATIENT
  Age: 43 None
  Sex: Male

DRUGS (7)
  1. EFFIENT [Suspect]
     Indication: ACUTE MYOCARDIAL INFARCTION
     Dosage: 10 MG, QD
     Dates: start: 20120918
  2. XANAX [Concomitant]
  3. MORPHINE [Concomitant]
  4. COREG [Concomitant]
  5. LISINOPRIL [Concomitant]
  6. ASA [Concomitant]
  7. PRAVASTATIN [Concomitant]

REACTIONS (2)
  - Non-cardiac chest pain [Unknown]
  - Coronary artery disease [Unknown]
